FAERS Safety Report 9460886 (Version 2)
Quarter: 2013Q3

REPORT INFORMATION
  Report Type: Spontaneous
  Country: AR (occurrence: AR)
  Receive Date: 20130816
  Receipt Date: 20130827
  Transmission Date: 20140515
  Serious: Yes (Other)
  Sender: FDA-Public Use
  Company Number: AR-AMGEN-ARGSP2013057409

PATIENT
  Age: 66 Year
  Sex: Female

DRUGS (3)
  1. PROLIA [Suspect]
     Indication: PRODUCT USED FOR UNKNOWN INDICATION
     Dosage: UNK UNK, Q6MO
     Route: 065
     Dates: start: 20120606
  2. VITAMIN D                          /00107901/ [Concomitant]
     Dosage: UNK
  3. CALCIUM [Concomitant]
     Dosage: UNK

REACTIONS (7)
  - Toxic skin eruption [Recovering/Resolving]
  - Scab [Recovering/Resolving]
  - Skin lesion [Recovering/Resolving]
  - Rash pruritic [Recovering/Resolving]
  - Inappropriate schedule of drug administration [Unknown]
  - Adverse event [Unknown]
  - Eczema [Recovering/Resolving]
